FAERS Safety Report 11327378 (Version 1)
Quarter: 2015Q3

REPORT INFORMATION
  Report Type: Spontaneous
  Country: BR (occurrence: BR)
  Receive Date: 20150731
  Receipt Date: 20150731
  Transmission Date: 20151125
  Serious: Yes (Other)
  Sender: FDA-Public Use
  Company Number: BR-PFIZER INC-2015256153

PATIENT
  Sex: Male

DRUGS (1)
  1. LYRICA [Suspect]
     Active Substance: PREGABALIN
     Dosage: AT 10 AM
     Route: 048

REACTIONS (4)
  - Tremor [Not Recovered/Not Resolved]
  - Status epilepticus [Not Recovered/Not Resolved]
  - Cerebrovascular accident [Unknown]
  - Head titubation [Not Recovered/Not Resolved]
